FAERS Safety Report 5945456-8 (Version None)
Quarter: 2008Q4

REPORT INFORMATION
  Report Type: 
  Country: None (occurrence: None)
  Receive Date: 20081107
  Receipt Date: 20081028
  Transmission Date: 20090506
  Serious: Yes (Hospitalization, Other)
  Sender: FDA-Public Use
  Company Number: US-PFIZER INC-2008084568

PATIENT
  Age: 56 Year
  Sex: Female
  Weight: 79.8 kg

DRUGS (16)
  1. CHANTIX [Suspect]
     Indication: SMOKING CESSATION THERAPY
     Route: 048
     Dates: start: 20080919, end: 20080926
  2. HYDROCHLOROTHIAZIDE [Suspect]
     Indication: PANCREATITIS
     Route: 048
     Dates: start: 20080101
  3. DEPAKOTE [Suspect]
     Indication: HEADACHE
  4. DIOVAN [Concomitant]
  5. NEXIUM [Concomitant]
  6. SYNTHROID [Concomitant]
  7. LIPITOR [Concomitant]
  8. PROTONIX [Concomitant]
  9. ALBUTEROL [Concomitant]
  10. HYDROCODONE [Concomitant]
  11. ACCOLATE [Concomitant]
  12. METFORMIN HCL [Concomitant]
  13. CORTEF [Concomitant]
  14. CYMBALTA [Concomitant]
  15. SYMBICORT [Concomitant]
  16. DRUGS FOR TREATMENT OF PEPTIC ULCER [Concomitant]

REACTIONS (17)
  - ABDOMINAL PAIN UPPER [None]
  - ANOREXIA [None]
  - ANXIETY [None]
  - CHEST PAIN [None]
  - CONSTIPATION [None]
  - DEPRESSION [None]
  - FLATULENCE [None]
  - GASTROOESOPHAGEAL REFLUX DISEASE [None]
  - HEADACHE [None]
  - INSOMNIA [None]
  - INTENTIONAL DRUG MISUSE [None]
  - IRRITABLE BOWEL SYNDROME [None]
  - MALAISE [None]
  - NAUSEA [None]
  - PANCREATITIS ACUTE [None]
  - PYREXIA [None]
  - VOMITING [None]
